FAERS Safety Report 7457817-9 (Version None)
Quarter: 2011Q2

REPORT INFORMATION
  Report Type: 
  Country: None (occurrence: None)
  Receive Date: 20110504
  Receipt Date: 20110420
  Transmission Date: 20111010
  Serious: Yes (Other)
  Sender: FDA-Public Use
  Company Number: PHHY2008GB31488

PATIENT
  Sex: Male

DRUGS (7)
  1. AMISULPRIDE [Suspect]
     Dosage: 1600 MG, QD
  2. HYOSCINE [Concomitant]
  3. VOLTAREN [Concomitant]
  4. DIAZEPAM [Suspect]
     Dosage: 4.5 MG, QD
  5. VALPROATE SODIUM [Suspect]
     Dosage: 200 MG, QD
  6. CLOZARIL [Suspect]
     Indication: SCHIZOPHRENIA
     Dosage: UNK
     Dates: start: 20060220
  7. SENNA [Concomitant]

REACTIONS (12)
  - MYOCARDITIS [None]
  - WHITE BLOOD CELL COUNT INCREASED [None]
  - C-REACTIVE PROTEIN INCREASED [None]
  - POOR PERSONAL HYGIENE [None]
  - SUBACUTE ENDOCARDITIS [None]
  - HAEMOGLOBIN DECREASED [None]
  - EOSINOPHIL COUNT INCREASED [None]
  - ANAEMIA [None]
  - TOOTH INFECTION [None]
  - NEUTROPENIA [None]
  - WHITE BLOOD CELL DISORDER [None]
  - ANTIBODY TEST ABNORMAL [None]
